FAERS Safety Report 8810797 (Version 1)
Quarter: 2012Q4

REPORT INFORMATION
  Report Type: Spontaneous
  Country: US (occurrence: None)
  Receive Date: 20120924
  Receipt Date: 20120924
  Transmission Date: 20130627
  Serious: Yes (Hospitalization)
  Sender: FDA-Public Use
  Company Number: None

PATIENT
  Age: 57 Year
  Sex: Female
  Weight: 83.92 kg

DRUGS (3)
  1. TRASTUZUMAB [Suspect]
     Indication: BREAST CANCER STAGE IV
     Route: 041
  2. DOCETAXEL [Suspect]
  3. PERTUZUMAB [Suspect]

REACTIONS (7)
  - Urticaria [None]
  - Diarrhoea [None]
  - Nausea [None]
  - Chills [None]
  - Pharyngeal oedema [None]
  - Hypotension [None]
  - Unresponsive to stimuli [None]
